FAERS Safety Report 8854675 (Version 1)
Quarter: 2012Q4

REPORT INFORMATION
  Report Type: 
  Country: MX (occurrence: MX)
  Receive Date: 20121023
  Receipt Date: 20121023
  Transmission Date: 20130627
  Serious: Yes (Death)
  Sender: FDA-Public Use
  Company Number: MX-PFIZER INC-2012262178

PATIENT
  Age: 76 Year
  Sex: Male
  Weight: 73 kg

DRUGS (2)
  1. CELEBREX [Suspect]
     Dosage: 200 mg, UNK
     Route: 048
     Dates: start: 201104, end: 20120811
  2. MIRCERA [Concomitant]
     Dosage: 100 mg, UNK
     Route: 030
     Dates: start: 201104, end: 20120811

REACTIONS (1)
  - Renal failure [Fatal]
